FAERS Safety Report 9629423 (Version 1)
Quarter: 2013Q4

REPORT INFORMATION
  Report Type: Spontaneous
  Country: US (occurrence: US)
  Receive Date: 20131017
  Receipt Date: 20131017
  Transmission Date: 20140711
  Serious: No
  Sender: FDA-Public Use
  Company Number: US-ASTRAZENECA-2013SE50301

PATIENT
  Age: 64 Year
  Sex: Male

DRUGS (10)
  1. CRESTOR [Suspect]
     Route: 048
  2. BRILINTA [Suspect]
     Indication: ACUTE CORONARY SYNDROME
     Dosage: ASSUMED BID
     Route: 048
     Dates: start: 20130529, end: 20130603
  3. BISOPROLOL [Concomitant]
  4. ASPIRIN [Concomitant]
     Dosage: DAILY
  5. ZETIA [Concomitant]
  6. PREDNISONE [Concomitant]
  7. FUROSEMIDE [Concomitant]
  8. OMEGA 3 FATTY ACIDS [Concomitant]
     Dosage: BID
  9. NITRO [Concomitant]
     Dosage: 0.4 PRN
  10. OXYGEN THERAPY [Concomitant]
     Dosage: 2 LITERS HS
     Route: 045

REACTIONS (1)
  - Dyspnoea [Unknown]
